FAERS Safety Report 5379075-1 (Version None)
Quarter: 2007Q3

REPORT INFORMATION
  Report Type: 
  Country: None (occurrence: None)
  Receive Date: 20070702
  Receipt Date: 20070625
  Transmission Date: 20080115
  Serious: Yes (Hospitalization)
  Sender: FDA-Public Use
  Company Number: 2007SP009305

PATIENT
  Age: 50 Year
  Sex: Female
  Weight: 76.6579 kg

DRUGS (2)
  1. PEG-INTRON [Suspect]
     Indication: HEPATITIS C
     Dosage: 120 MCG; SC
     Route: 058
     Dates: start: 20070424, end: 20070504
  2. RIBAVIRIN [Suspect]
     Indication: HEPATITIS C
     Dosage: PO
     Route: 048
     Dates: start: 20070423, end: 20070504

REACTIONS (6)
  - ADVERSE DRUG REACTION [None]
  - BLOOD PRESSURE ABNORMAL [None]
  - CONSTIPATION [None]
  - HEADACHE [None]
  - INTRACRANIAL ANEURYSM [None]
  - PYREXIA [None]
